FAERS Safety Report 24334912 (Version 1)
Quarter: 2024Q3

REPORT INFORMATION
  Report Type: Report from Study
  Country: CN (occurrence: CN)
  Receive Date: 20240918
  Receipt Date: 20240918
  Transmission Date: 20241016
  Serious: Yes (Hospitalization)
  Sender: EISAI
  Company Number: CN-Eisai-EC-2024-174188

PATIENT
  Age: 66 Year
  Sex: Male
  Weight: 58 kg

DRUGS (9)
  1. LENVATINIB [Suspect]
     Active Substance: LENVATINIB
     Indication: Hepatocellular carcinoma
     Route: 048
     Dates: start: 20230607
  2. VOLRUSTOMIG [Suspect]
     Active Substance: VOLRUSTOMIG
     Indication: Hepatocellular carcinoma
     Route: 042
     Dates: start: 20230607
  3. ENTECAVIR [Concomitant]
     Active Substance: ENTECAVIR
     Indication: Hepatitis B
     Dates: start: 20230603
  4. TENOFOVIR ALAFENAMIDE FUMARATE [Concomitant]
     Active Substance: TENOFOVIR ALAFENAMIDE FUMARATE
     Indication: Hepatitis B
     Dates: start: 20230603
  5. REDUCED GLUTATHIONE [Concomitant]
     Indication: Aspartate aminotransferase increased
     Dates: start: 20230614
  6. BICYCLOL [Concomitant]
     Active Substance: BICYCLOL
     Indication: Aspartate aminotransferase increased
     Dates: start: 20230621
  7. ACYCLOVIR [Concomitant]
     Active Substance: ACYCLOVIR
     Dates: start: 20230621
  8. AVATROMBOPAG [Concomitant]
     Active Substance: AVATROMBOPAG
     Dates: start: 20231018
  9. AUDOMINEN [Concomitant]
     Indication: Aspartate aminotransferase increased

REACTIONS (1)
  - Pneumonia [Not Recovered/Not Resolved]

NARRATIVE: CASE EVENT DATE: 20240401
